FAERS Safety Report 8122588 (Version 3)
Quarter: 2012Q4

REPORT INFORMATION
  Report Type: 
  Country: US (occurrence: US)
  Receive Date: 20110906
  Receipt Date: 20120927
  Transmission Date: 20130627
  Serious: No
  Sender: FDA-Public Use
  Company Number: US-AMGEN-USASP2011036657

PATIENT
  Age: 72 Year
  Sex: Male
  Weight: 93.88 kg

DRUGS (22)
  1. XGEVA [Suspect]
     Indication: METASTASES TO BONE
     Dosage: 120 mg, q4wk
     Dates: start: 20110505, end: 20110601
  2. XGEVA [Suspect]
     Indication: PROSTATE CANCER
     Dosage: 60 mg, qmo
     Dates: start: 201206
  3. XGEVA [Suspect]
     Dosage: 60 mg, UNK
     Dates: start: 201207
  4. PLAVIX [Concomitant]
     Dosage: 75 mg, qd
  5. METFORMIN [Concomitant]
     Dosage: 1 mg, UNK
  6. NITROGLYCERIN [Concomitant]
     Dosage: 1 mg, UNK
  7. RANITIDINE [Concomitant]
     Dosage: 300 mg, qd
  8. ASPIRIN [Concomitant]
     Dosage: UNK
  9. PHENAZOPYRIDINE [Concomitant]
     Dosage: UNK
  10. ZOCOR [Concomitant]
     Dosage: 1 mg, UNK
  11. HYDROCODONE [Concomitant]
     Dosage: UNK
  12. GLUCOSAMINE CHONDROITIN [Concomitant]
     Dosage: UNK
  13. ANTIBIOTICS [Concomitant]
     Dosage: UNK
     Dates: start: 20110718
  14. VITAMIN D [Concomitant]
     Dosage: UNK
  15. VITAMIN B COMPLEX [Concomitant]
     Dosage: UNK
  16. LUPRON [Concomitant]
     Dosage: UNK
  17. DOXAZOSIN [Concomitant]
     Dosage: 2 mg, qd
  18. FINASTERIDE [Concomitant]
     Dosage: UNK UNK, qd
  19. MOTRIN [Concomitant]
     Dosage: UNK
  20. LEVEMIR [Concomitant]
     Dosage: 20 IU, UNK
  21. SIMVASTATIN [Concomitant]
     Dosage: 400 g, UNK
  22. ZOMETA [Concomitant]
     Dosage: UNK

REACTIONS (4)
  - Rash pruritic [Recovered/Resolved]
  - Rash erythematous [Recovered/Resolved]
  - Ecchymosis [Unknown]
  - Drug eruption [Recovered/Resolved]
